FAERS Safety Report 22606368 (Version 1)
Quarter: 2023Q2

REPORT INFORMATION
  Report Type: Report from Study
  Country: US (occurrence: US)
  Receive Date: 20230615
  Receipt Date: 20230615
  Transmission Date: 20230722
  Serious: Yes (Other)
  Sender: FDA-Public Use
  Company Number: US-TEVA-2023-US-2897450

PATIENT
  Sex: Female

DRUGS (1)
  1. CLARAVIS [Suspect]
     Active Substance: ISOTRETINOIN
     Indication: Product used for unknown indication
     Dosage: 40 MG
     Route: 065
     Dates: end: 2023

REACTIONS (3)
  - Depression [Unknown]
  - Anxiety [Unknown]
  - Malaise [Unknown]

NARRATIVE: CASE EVENT DATE: 20230101
